FAERS Safety Report 9134680 (Version 5)
Quarter: 2013Q3

REPORT INFORMATION
  Report Type: Report from Study
  Country: CA (occurrence: CA)
  Receive Date: 20130304
  Receipt Date: 20130722
  Transmission Date: 20140515
  Serious: Yes (Death, Hospitalization, Other)
  Sender: FDA-Public Use
  Company Number: PHHY2012CA010955

PATIENT
  Age: 53 Year
  Sex: Female

DRUGS (2)
  1. ZOMETA [Suspect]
     Indication: BREAST CANCER METASTATIC
     Dosage: 4 MG EVERY 8 WEEKS
     Route: 042
     Dates: start: 20120131
  2. CHEMOTHERAPEUTICS [Concomitant]

REACTIONS (20)
  - Death [Fatal]
  - Metastases to lung [Unknown]
  - Pyrexia [Unknown]
  - Cataract [Unknown]
  - Visual impairment [Unknown]
  - Blood alkaline phosphatase increased [Unknown]
  - Urinary tract infection [Unknown]
  - Neck pain [Unknown]
  - Pain in jaw [Unknown]
  - Swelling face [Unknown]
  - Aspartate aminotransferase increased [Unknown]
  - Haemoglobin decreased [Unknown]
  - Haematocrit decreased [Unknown]
  - Mean cell haemoglobin decreased [Unknown]
  - Red cell distribution width increased [Unknown]
  - Lymphocyte count decreased [Unknown]
  - Asthenia [Unknown]
  - Fatigue [Unknown]
  - Constipation [Unknown]
  - Blood creatinine decreased [Unknown]
